FAERS Safety Report 7767689-0 (Version None)
Quarter: 2011Q3

REPORT INFORMATION
  Report Type: 
  Country: None (occurrence: None)
  Receive Date: 20110922
  Receipt Date: 20110916
  Transmission Date: 20111222
  Serious: Yes (Hospitalization)
  Sender: FDA-Public Use
  Company Number: SE-PFIZER INC-2011221191

PATIENT
  Age: 54 Year
  Sex: Male

DRUGS (5)
  1. ALVEDON [Concomitant]
     Dosage: 665 MG, UNK
  2. AMITRIPTYLINE HCL [Concomitant]
     Dosage: 50 MG, UNK
  3. FELODIPINE [Concomitant]
     Dosage: UNK
  4. LYRICA [Suspect]
     Indication: NEUROSIS
     Dosage: UNK
     Route: 048
  5. ORALOVITE [Concomitant]
     Dosage: UNK

REACTIONS (1)
  - DRUG ABUSE [None]
